FAERS Safety Report 9429297 (Version 1)
Quarter: 2013Q3

REPORT INFORMATION
  Report Type: Spontaneous
  Country: US (occurrence: US)
  Receive Date: 20130730
  Receipt Date: 20130730
  Transmission Date: 20140515
  Serious: Yes (Hospitalization)
  Sender: FDA-Public Use
  Company Number: US-GLAXOSMITHKLINE-A1034904A

PATIENT
  Age: 51 Year
  Sex: Female

DRUGS (8)
  1. ARZERRA [Suspect]
     Indication: CHRONIC LYMPHOCYTIC LEUKAEMIA
     Dosage: 300MG WEEKLY
     Route: 042
     Dates: start: 20130528, end: 20130604
  2. ACYCLOVIR [Concomitant]
  3. SULFAMETHOXAZOL + TRIMETHOPRIM [Concomitant]
  4. ASPIRIN LOW DOSE [Concomitant]
  5. MULTI VITAMIN [Concomitant]
  6. COQ10 [Concomitant]
  7. CORAL CALCIUM [Concomitant]
  8. LEVAQUIN [Concomitant]

REACTIONS (9)
  - Pancytopenia [Recovering/Resolving]
  - Apparent death [Recovering/Resolving]
  - Local swelling [Recovered/Resolved]
  - Back pain [Recovering/Resolving]
  - Arthralgia [Recovering/Resolving]
  - Asthenia [Recovering/Resolving]
  - Lymphadenopathy [Recovering/Resolving]
  - Drug hypersensitivity [Recovering/Resolving]
  - Throat tightness [Recovering/Resolving]
